FAERS Safety Report 10239694 (Version 1)
Quarter: 2014Q2

REPORT INFORMATION
  Report Type: Report from Study
  Country: CA (occurrence: CA)
  Receive Date: 20140616
  Receipt Date: 20140616
  Transmission Date: 20141212
  Serious: Yes (Other)
  Sender: FDA-Public Use
  Company Number: CA-BRISTOL-MYERS SQUIBB COMPANY-20985685

PATIENT
  Age: 79 Year
  Sex: Female

DRUGS (9)
  1. ORENCIA [Suspect]
     Indication: RHEUMATOID ARTHRITIS
     Route: 042
     Dates: start: 20131212
  2. METFORMIN [Concomitant]
  3. LIPITOR [Concomitant]
  4. PARIET [Concomitant]
  5. HYDROCHLOROTHIAZIDE [Concomitant]
  6. ARAVA [Concomitant]
  7. PLAQUENIL [Concomitant]
  8. TRAMADOL [Concomitant]
  9. ACTONEL [Concomitant]

REACTIONS (2)
  - Carpal tunnel syndrome [Unknown]
  - Post procedural infection [Unknown]
